FAERS Safety Report 9652880 (Version 3)
Quarter: 2014Q4

REPORT INFORMATION
  Report Type: Spontaneous
  Country: DK (occurrence: DK)
  Receive Date: 20131029
  Receipt Date: 20141125
  Transmission Date: 20150529
  Serious: Yes (Life-Threatening, Hospitalization, Other)
  Sender: FDA-Public Use
  Company Number: DK-TEVA-440909USA

PATIENT
  Age: 71 Year

DRUGS (6)
  1. MABTHERA [Suspect]
     Active Substance: RITUXIMAB
     Indication: B-CELL LYMPHOMA
     Route: 042
     Dates: start: 20130325
  2. PANTOTOC [Concomitant]
  3. LEVACT [Suspect]
     Active Substance: BENDAMUSTINE HYDROCHLORIDE
     Indication: B-CELL LYMPHOMA
     Dosage: CYCLIC/POWDER(EXCEPT DUSTING POWDER)/ 2.5MG/ML
     Route: 042
     Dates: start: 20130325
  4. DIURAL [Concomitant]
     Active Substance: FUROSEMIDE
  5. CENTYL MED KALIUMKLORID [Concomitant]
     Active Substance: BENDROFLUMETHIAZIDE\POTASSIUM CHLORIDE
     Indication: RENAL CYST
     Dates: start: 2006
  6. METOPROLOL TARTRATE. [Concomitant]
     Active Substance: METOPROLOL TARTRATE

REACTIONS (2)
  - Sepsis [Recovering/Resolving]
  - Pancytopenia [Recovering/Resolving]

NARRATIVE: CASE EVENT DATE: 201306
